FAERS Safety Report 8249702-X (Version None)
Quarter: 2012Q2

REPORT INFORMATION
  Report Type: 
  Country: None (occurrence: None)
  Receive Date: 20120402
  Receipt Date: 20120322
  Transmission Date: 20120825
  Serious: Yes (Hospitalization)
  Sender: FDA-Public Use
  Company Number: JP-BRISTOL-MYERS SQUIBB COMPANY-16402174

PATIENT
  Sex: Female
  Weight: 45 kg

DRUGS (12)
  1. SODIUM GUALENATE [Concomitant]
     Dosage: SODIUM GUALENATE L1-GLUTAMINE
  2. CANDESARTAN CILEXETIL [Concomitant]
  3. OMEPRAZOLE [Concomitant]
  4. CELECOXIB [Concomitant]
     Indication: RHEUMATOID ARTHRITIS
  5. ISONIAZID METHANESULFONATE [Concomitant]
  6. FUROSEMIDE [Concomitant]
  7. CONIEL [Concomitant]
  8. ASPIRIN [Concomitant]
  9. ORENCIA [Suspect]
     Indication: RHEUMATOID ARTHRITIS
     Dosage: ALSO TAKEN ON 7JUL11,4AUG11,1SEP11,23SEP11,29SEP11
     Route: 041
     Dates: start: 20110609, end: 20111208
  10. PREDNISOLONE [Concomitant]
     Indication: RHEUMATOID ARTHRITIS
     Dosage: 12MAY11-6JUL11:8MG/DAY 7JUL11-ONG: 6MG/DAY
     Route: 048
     Dates: start: 20110512
  11. ALENDRONATE SODIUM [Concomitant]
  12. PYRIDOXAL PHOSPHATE [Concomitant]
     Indication: PROPHYLAXIS

REACTIONS (1)
  - ILIUM FRACTURE [None]
